FAERS Safety Report 23058638 (Version 1)
Quarter: 2023Q4

REPORT INFORMATION
  Report Type: Report from Study
  Country: US (occurrence: US)
  Receive Date: 20231012
  Receipt Date: 20231012
  Transmission Date: 20240109
  Serious: Yes (Other)
  Sender: FDA-Public Use
  Company Number: US-SANDOZ-SDZ2023US039927

PATIENT
  Sex: Female

DRUGS (2)
  1. ENTRESTO [Suspect]
     Active Substance: SACUBITRIL\VALSARTAN
     Indication: Product used for unknown indication
     Dosage: UNK UNK, QD (UNK, BID (24/26MG))
     Route: 048
     Dates: start: 202304
  2. LISINOPRIL [Suspect]
     Active Substance: LISINOPRIL
     Indication: Product used for unknown indication
     Dosage: UNK
     Route: 065

REACTIONS (4)
  - Atrial fibrillation [Unknown]
  - Catheterisation cardiac abnormal [Unknown]
  - Weight decreased [Unknown]
  - Gluten sensitivity [Unknown]

NARRATIVE: CASE EVENT DATE: 20140101
